FAERS Safety Report 9296839 (Version 2)
Quarter: 2013Q2

REPORT INFORMATION
  Report Type: Spontaneous
  Country: US (occurrence: US)
  Receive Date: 20130517
  Receipt Date: 20130626
  Transmission Date: 20140414
  Serious: No
  Sender: FDA-Public Use
  Company Number: US-PFIZER INC-2013152037

PATIENT
  Age: 53 Year
  Sex: Female
  Weight: 62.59 kg

DRUGS (3)
  1. CHANTIX [Suspect]
     Indication: SMOKING CESSATION THERAPY
     Dosage: 0.5 MG, DAILY
     Dates: start: 2011, end: 2011
  2. CHANTIX [Suspect]
     Dosage: UNK
     Dates: start: 2011, end: 2011
  3. HYDROCHLOROTHIAZIDE/LOSARTAN POTASSIUM [Suspect]
     Indication: HYPERTENSION
     Dosage: 100/12.5 MG 1X/DAY
     Route: 048
     Dates: start: 20121030, end: 201211

REACTIONS (6)
  - Abnormal dreams [Unknown]
  - Sleep disorder [Unknown]
  - Drug intolerance [Unknown]
  - Fatigue [Unknown]
  - Dizziness [Unknown]
  - Vision blurred [Unknown]
